FAERS Safety Report 9163078 (Version 1)
Quarter: 2013Q1

REPORT INFORMATION
  Report Type: Spontaneous
  Country: IT (occurrence: None)
  Receive Date: 20130227
  Receipt Date: 20130227
  Transmission Date: 20140127
  Serious: Yes (Other)
  Sender: FDA-Public Use
  Company Number: AUR-APL-2013-01713

PATIENT
  Age: 29 Year
  Sex: Male

DRUGS (1)
  1. OLANZAPINE (OLANZAPINE) [Suspect]
     Route: 048
     Dates: start: 20121001, end: 20130131

REACTIONS (2)
  - Hypotension [None]
  - Drug ineffective [None]
